FAERS Safety Report 5588744-X (Version None)
Quarter: 2008Q1

REPORT INFORMATION
  Report Type: 
  Country: None (occurrence: None)
  Receive Date: 20080111
  Receipt Date: 20080103
  Transmission Date: 20080703
  Serious: Yes (Other)
  Sender: FDA-Public Use
  Company Number: B0361103A

PATIENT
  Age: 43 Year
  Sex: Female

DRUGS (5)
  1. PAROXETINE HYDROCHLORIDE [Suspect]
     Indication: POSTPARTUM DEPRESSION
     Dosage: 20MG PER DAY
     Route: 065
     Dates: start: 19990813
  2. INSULIN [Concomitant]
     Indication: DIABETES MELLITUS
  3. LEVOTHYROXINE SODIUM [Concomitant]
     Indication: HYPOTHYROIDISM
  4. DIAZEPAM [Concomitant]
     Route: 065
     Dates: start: 19890516
  5. LUSTRAL [Concomitant]
     Route: 065
     Dates: start: 20020409

REACTIONS (18)
  - ANXIETY [None]
  - APATHY [None]
  - BRAIN NEOPLASM BENIGN [None]
  - CRYING [None]
  - DIARRHOEA [None]
  - DIZZINESS [None]
  - DRUG WITHDRAWAL SYNDROME [None]
  - EMOTIONAL DISORDER [None]
  - FEELINGS OF WORTHLESSNESS [None]
  - INFLUENZA [None]
  - MOOD SWINGS [None]
  - NAUSEA [None]
  - PAIN IN EXTREMITY [None]
  - PARAESTHESIA [None]
  - PARANOIA [None]
  - SENSORY DISTURBANCE [None]
  - SUICIDAL IDEATION [None]
  - VOMITING [None]
